FAERS Safety Report 4874677-0 (Version None)
Quarter: 2006Q1

REPORT INFORMATION
  Report Type: 
  Country: None (occurrence: None)
  Receive Date: 20060106
  Receipt Date: 20051005
  Transmission Date: 20060701
  Serious: Yes (Hospitalization)
  Sender: FDA-Public Use
  Company Number: US-MERCK-0510USA03365

PATIENT
  Age: 67 Year
  Sex: Female
  Weight: 59 kg

DRUGS (8)
  1. VIOXX [Suspect]
     Indication: MUSCULOSKELETAL PAIN
     Route: 048
     Dates: start: 20030201, end: 20040801
  2. PROTONIX [Concomitant]
     Route: 048
  3. FLEXERIL [Concomitant]
     Route: 065
  4. FUROSEMIDE [Concomitant]
     Route: 048
  5. POTASSIUM (UNSPECIFIED) [Concomitant]
     Route: 065
  6. VIOXX [Suspect]
     Indication: ARTHRITIS
     Route: 048
     Dates: start: 20010316, end: 20020101
  7. VIOXX [Suspect]
     Route: 048
     Dates: start: 20030201, end: 20040801
  8. VIOXX [Suspect]
     Route: 048
     Dates: start: 20010316, end: 20020101

REACTIONS (8)
  - ACUTE MYOCARDIAL INFARCTION [None]
  - ANAEMIA [None]
  - CORONARY ARTERY DISEASE [None]
  - CORONARY ARTERY STENOSIS [None]
  - DILATATION VENTRICULAR [None]
  - FALL [None]
  - SYNCOPE [None]
  - VISION BLURRED [None]
